FAERS Safety Report 5085107-0 (Version None)
Quarter: 2006Q3

REPORT INFORMATION
  Report Type: 
  Country: None (occurrence: None)
  Receive Date: 20060816
  Receipt Date: 20060807
  Transmission Date: 20061208
  Serious: Yes (Other)
  Sender: FDA-Public Use
  Company Number: HQWYE573230JAN06

PATIENT
  Age: 55 Year
  Sex: Female

DRUGS (2)
  1. PANTOPRAZOLE SODIUM [Suspect]
     Indication: PROPHYLAXIS AGAINST GASTROINTESTINAL ULCER
     Dosage: 40 MG 1X PER 1 TOT ORAL
     Route: 048
     Dates: start: 20060113, end: 20060113
  2. NON-STEROIDAL ANTI-INFLAMMATORY AGENT (NON-STEROIDAL ANTI-INFLAMMATORY [Concomitant]

REACTIONS (2)
  - ANAPHYLACTIC REACTION [None]
  - EXTRASYSTOLES [None]
